FAERS Safety Report 6884177-4 (Version None)
Quarter: 2010Q3

REPORT INFORMATION
  Report Type: 
  Country: None (occurrence: None)
  Receive Date: 20100729
  Receipt Date: 20100719
  Transmission Date: 20110219
  Serious: Yes (Hospitalization)
  Sender: FDA-Public Use
  Company Number: FR-WYE-H16349810

PATIENT
  Age: 62 Year
  Sex: Male

DRUGS (5)
  1. CORDARONE [Suspect]
     Route: 048
     Dates: start: 20071201, end: 20100528
  2. BISOPROLOL FUMARATE [Suspect]
     Route: 048
     Dates: start: 20071201, end: 20100528
  3. COUMADIN [Concomitant]
     Dosage: UNKNOWN
     Dates: start: 20071201
  4. PERINDOPRIL ERBUMINE [Concomitant]
     Dosage: UNKNOWN
     Dates: start: 20071201, end: 20100528
  5. LASIX [Concomitant]
     Dosage: UNKNOWN
     Dates: start: 20071201

REACTIONS (1)
  - LUNG DISORDER [None]
